FAERS Safety Report 14558709 (Version 3)
Quarter: 2018Q2

REPORT INFORMATION
  Report Type: Spontaneous
  Country: US (occurrence: US)
  Receive Date: 20180221
  Receipt Date: 20180517
  Transmission Date: 20180711
  Serious: Yes (Hospitalization, Other)
  Sender: FDA-Public Use
  Company Number: US-OTSUKA-2018_003717

PATIENT
  Sex: Female
  Weight: 48.98 kg

DRUGS (6)
  1. ABILIFY [Suspect]
     Active Substance: ARIPIPRAZOLE
     Indication: AFFECTIVE DISORDER
     Dosage: 10 MG, DAILY
     Route: 065
     Dates: start: 200802
  2. ABILIFY [Suspect]
     Active Substance: ARIPIPRAZOLE
     Dosage: 20 MG
     Route: 065
  3. ABILIFY [Suspect]
     Active Substance: ARIPIPRAZOLE
     Dosage: 40 MG
     Route: 065
  4. ABILIFY [Suspect]
     Active Substance: ARIPIPRAZOLE
     Dosage: 10 MG, UNK
     Route: 065
  5. HALDOL [Suspect]
     Active Substance: HALOPERIDOL
     Indication: PRODUCT USED FOR UNKNOWN INDICATION
     Dosage: UNK
     Route: 065
  6. ARIPIPRAZOLE. [Suspect]
     Active Substance: ARIPIPRAZOLE
     Indication: PRODUCT USED FOR UNKNOWN INDICATION
     Dosage: 10 MG, UNK
     Route: 065

REACTIONS (16)
  - Weight increased [Recovering/Resolving]
  - Balance disorder [Unknown]
  - Fall [Unknown]
  - Cardiac failure congestive [Unknown]
  - Dyspnoea [Unknown]
  - Flushing [Unknown]
  - Increased appetite [Unknown]
  - Blood sodium decreased [Unknown]
  - Coordination abnormal [Unknown]
  - Walking aid user [Unknown]
  - Overdose [Unknown]
  - Confusional state [Not Recovered/Not Resolved]
  - Hypokinesia [Unknown]
  - Tremor [Not Recovered/Not Resolved]
  - Unevaluable event [Unknown]
  - Insurance issue [Unknown]

NARRATIVE: CASE EVENT DATE: 2008
